FAERS Safety Report 8913440 (Version 3)
Quarter: 2017Q4

REPORT INFORMATION
  Report Type: Spontaneous
  Country: US (occurrence: US)
  Receive Date: 20121116
  Receipt Date: 20171004
  Transmission Date: 20180321
  Serious: Yes (Hospitalization, Other)
  Sender: FDA-Public Use
  Company Number: US-ROCHE-1155759

PATIENT
  Age: 76 Year
  Sex: Female

DRUGS (4)
  1. FOSAMAX [Suspect]
     Active Substance: ALENDRONATE SODIUM
     Indication: OSTEOPOROSIS
     Route: 048
     Dates: start: 2003, end: 200512
  2. BONIVA [Suspect]
     Active Substance: IBANDRONATE SODIUM
     Indication: OSTEOPOROSIS
     Route: 048
     Dates: start: 200601, end: 201102
  3. FOSAMAX [Suspect]
     Active Substance: ALENDRONATE SODIUM
     Route: 048
     Dates: start: 20050506, end: 20051223
  4. BONIVA [Suspect]
     Active Substance: IBANDRONATE SODIUM
     Route: 048
     Dates: start: 20060103, end: 20101129

REACTIONS (6)
  - Osteoarthritis [Unknown]
  - Emotional distress [Unknown]
  - Intervertebral disc degeneration [Unknown]
  - Femur fracture [Unknown]
  - Low turnover osteopathy [Unknown]
  - Anxiety [Unknown]

NARRATIVE: CASE EVENT DATE: 20110111
